FAERS Safety Report 4364595-9 (Version None)
Quarter: 2004Q2

REPORT INFORMATION
  Report Type: 
  Country: None (occurrence: None)
  Receive Date: 20040525
  Receipt Date: 20030311
  Transmission Date: 20050107
  Serious: Yes (Death, Life-Threatening, Hospitalization, Disabling)
  Sender: FDA-Public Use
  Company Number: ATO-03-0096

PATIENT
  Age: 68 Year
  Sex: Female
  Weight: 73.0291 kg

DRUGS (3)
  1. TRISENOX [Suspect]
     Indication: CHRONIC MYELOID LEUKAEMIA
     Dosage: 18 MG (0.25 MG/KG, DAILY) IVI
     Route: 042
     Dates: start: 20030217, end: 20030304
  2. LASIX [Concomitant]
  3. POTASSIUM CHLORIDE [Concomitant]

REACTIONS (33)
  - ANAEMIA [None]
  - BACK PAIN [None]
  - BLOOD ALBUMIN DECREASED [None]
  - BLOOD CALCIUM DECREASED [None]
  - BLOOD GLUCOSE INCREASED [None]
  - BLOOD LACTATE DEHYDROGENASE INCREASED [None]
  - BLOOD MAGNESIUM DECREASED [None]
  - BLOOD PH INCREASED [None]
  - BLOOD POTASSIUM DECREASED [None]
  - BLOOD SODIUM DECREASED [None]
  - BUTTOCK PAIN [None]
  - CARDIAC FAILURE CONGESTIVE [None]
  - CARDIO-RESPIRATORY ARREST [None]
  - CORONARY ARTERY ATHEROSCLEROSIS [None]
  - DYSPNOEA [None]
  - FALL [None]
  - HAEMORRHAGE [None]
  - LETHARGY [None]
  - LOBAR PNEUMONIA [None]
  - LYMPHADENOPATHY [None]
  - MENTAL STATUS CHANGES [None]
  - MUSCLE HAEMORRHAGE [None]
  - MYELOBLAST COUNT INCREASED [None]
  - OEDEMA PERIPHERAL [None]
  - PCO2 DECREASED [None]
  - PLATELET COUNT DECREASED [None]
  - PLEURAL EFFUSION [None]
  - PO2 DECREASED [None]
  - PROTEIN TOTAL INCREASED [None]
  - PULMONARY CONGESTION [None]
  - PULMONARY OEDEMA [None]
  - SPLENOMEGALY [None]
  - WHITE BLOOD CELL COUNT INCREASED [None]
